FAERS Safety Report 14666125 (Version 1)
Quarter: 2018Q1

REPORT INFORMATION
  Report Type: Not Available
  Country: US (occurrence: US)
  Receive Date: 20180321
  Receipt Date: 20180321
  Transmission Date: 20180509
  Serious: Yes (Hospitalization)
  Sender: FDA-Public Use
  Company Number: US-NEUROCRINE BIOSCIENCES INC.-2018NBI00732

PATIENT
  Sex: Female

DRUGS (17)
  1. HUMALOG [Concomitant]
     Active Substance: INSULIN LISPRO
  2. BENADRYL [Concomitant]
     Active Substance: DIPHENHYDRAMINE HYDROCHLORIDE
  3. AMLODIPINE [Concomitant]
     Active Substance: AMLODIPINE BESYLATE
  4. VITAMIN C [Concomitant]
     Active Substance: ASCORBIC ACID
  5. LORATADINE. [Concomitant]
     Active Substance: LORATADINE
  6. COLACE [Concomitant]
     Active Substance: DOCUSATE SODIUM
  7. INGREZZA [Suspect]
     Active Substance: VALBENAZINE
     Indication: PRODUCT USED FOR UNKNOWN INDICATION
     Route: 048
     Dates: start: 20180208
  8. CYMBALTA [Concomitant]
     Active Substance: DULOXETINE HYDROCHLORIDE
  9. LIPITOR [Concomitant]
     Active Substance: ATORVASTATIN CALCIUM
  10. PHENERGAN [Concomitant]
     Active Substance: PROMETHAZINE HYDROCHLORIDE
  11. ASPIRIN. [Concomitant]
     Active Substance: ASPIRIN
  12. VITAMIN D3 [Concomitant]
     Active Substance: CHOLECALCIFEROL
  13. REQUIP [Concomitant]
     Active Substance: ROPINIROLE HYDROCHLORIDE
  14. CALCITRIOL. [Concomitant]
     Active Substance: CALCITRIOL
  15. CLOPIDOGREL [Concomitant]
     Active Substance: CLOPIDOGREL BISULFATE
  16. MIRALAX [Concomitant]
     Active Substance: POLYETHYLENE GLYCOL 3350
  17. MELATONIN [Concomitant]
     Active Substance: MELATONIN

REACTIONS (2)
  - End stage renal disease [Unknown]
  - Drug ineffective [None]
